FAERS Safety Report 8617844 (Version 2)
Quarter: 2014Q1

REPORT INFORMATION
  Report Type: Spontaneous
  Country: US (occurrence: US)
  Receive Date: 20120615
  Receipt Date: 20140306
  Transmission Date: 20141002
  Serious: Yes (Other)
  Sender: FDA-Public Use
  Company Number: US-ASTRAZENECA-2012SE37734

PATIENT
  Age: 66 Year
  Sex: Female
  Weight: 105.2 kg

DRUGS (6)
  1. NEXIUM [Suspect]
     Route: 048
  2. CRESTOR [Suspect]
     Indication: BLOOD CHOLESTEROL ABNORMAL
     Route: 048
     Dates: start: 2012, end: 20140224
  3. LIPITOR [Concomitant]
  4. LYRICH [Concomitant]
     Indication: PAIN
     Route: 048
     Dates: start: 20130221
  5. ACCUPRIL [Concomitant]
     Indication: BLOOD PRESSURE ABNORMAL
     Route: 048
     Dates: start: 2009
  6. HYDROCHLOROT [Concomitant]
     Indication: DIURETIC THERAPY
     Route: 048
     Dates: start: 2009

REACTIONS (6)
  - Wrist fracture [Recovered/Resolved]
  - Gastrooesophageal reflux disease [Unknown]
  - Dyspepsia [Unknown]
  - Joint swelling [Not Recovered/Not Resolved]
  - Local swelling [Not Recovered/Not Resolved]
  - Drug dose omission [Unknown]
